FAERS Safety Report 12543264 (Version 1)
Quarter: 2016Q3

REPORT INFORMATION
  Report Type: Spontaneous
  Country: US (occurrence: US)
  Receive Date: 20160711
  Receipt Date: 20160711
  Transmission Date: 20161109
  Serious: No
  Sender: FDA-Public Use
  Company Number: US-STRIDES ARCOLAB LIMITED-2016SP002704

PATIENT

DRUGS (6)
  1. INTERLEUKIN-2 [Suspect]
     Active Substance: ALDESLEUKIN
     Dosage: 11 MILLION IU, 2 TIMES A WEEK
  2. INTERLEUKIN-2 [Suspect]
     Active Substance: ALDESLEUKIN
     Indication: METASTATIC MALIGNANT MELANOMA
     Dosage: 7 MILLION IU, 2 TIMES A WEEK
  3. TRETINOIN. [Suspect]
     Active Substance: TRETINOIN
     Indication: METASTATIC MALIGNANT MELANOMA
     Dosage: 0.1 %, QD SEVEN CONSECUTIVE DAYS EACH MONTH
     Route: 061
  4. PACLITAXEL. [Concomitant]
     Active Substance: PACLITAXEL
     Indication: METASTATIC MALIGNANT MELANOMA
     Dosage: FIVE CYCLES
  5. IMIQUIMOD. [Suspect]
     Active Substance: IMIQUIMOD
     Indication: METASTATIC MALIGNANT MELANOMA
     Dosage: 0.1 %, QD
     Route: 061
  6. CARBOPLATIN. [Concomitant]
     Active Substance: CARBOPLATIN
     Indication: METASTATIC MALIGNANT MELANOMA
     Dosage: FIVE CYCLES

REACTIONS (6)
  - Inflammation [Unknown]
  - Erythema [Unknown]
  - Skin erosion [Unknown]
  - Chills [Unknown]
  - Nausea [Unknown]
  - Back pain [Unknown]
